FAERS Safety Report 8710565 (Version 2)
Quarter: 2012Q4

REPORT INFORMATION
  Report Type: 
  Country: US (occurrence: US)
  Receive Date: 20120807
  Receipt Date: 20120914
  Transmission Date: 20130627
  Serious: Yes (Death)
  Sender: FDA-Public Use
  Company Number: US-PFIZER INC-2012188047

PATIENT
  Age: 74 Year
  Sex: Male

DRUGS (6)
  1. INLYTA [Suspect]
     Indication: RENAL CANCER
     Dosage: 5 mg, 2x/day
     Route: 048
     Dates: start: 20120529, end: 201207
  2. AVODART [Concomitant]
  3. HYDROCODONE [Concomitant]
  4. NIFEDIPINE [Concomitant]
  5. SIMVASTATIN [Concomitant]
  6. CENTRUM SILVER [Concomitant]

REACTIONS (2)
  - Disease progression [Fatal]
  - Renal cancer [Fatal]
